FAERS Safety Report 15567790 (Version 1)
Quarter: 2018Q4

REPORT INFORMATION
  Report Type: Spontaneous
  Country: US (occurrence: US)
  Receive Date: 20181030
  Receipt Date: 20181030
  Transmission Date: 20190205
  Serious: No
  Sender: FDA-Public Use
  Company Number: US-RISING PHARMACEUTICALS, INC.-2018RIS00110

PATIENT
  Age: 40 Year
  Sex: Female
  Weight: 52.15 kg

DRUGS (5)
  1. CROMOLYN SODIUM. [Suspect]
     Active Substance: CROMOLYN SODIUM
     Dosage: 100 MG, 5X/DAY
     Route: 048
     Dates: start: 201802
  2. CROMOLYN SODIUM. [Suspect]
     Active Substance: CROMOLYN SODIUM
     Indication: MAST CELL ACTIVATION SYNDROME
     Dosage: 100 MG, 5X/DAY
     Route: 048
     Dates: start: 2015, end: 201802
  3. PARACTIN [Concomitant]
     Active Substance: DIETARY SUPPLEMENT
  4. CROMOLYN SODIUM. [Suspect]
     Active Substance: CROMOLYN SODIUM
     Dosage: 100 MG, 5X/DAY
     Route: 048
     Dates: start: 201802, end: 201802
  5. CROMOLYN SODIUM. [Suspect]
     Active Substance: CROMOLYN SODIUM
     Dosage: 100 MG, 5X/DAY
     Route: 048
     Dates: start: 201802, end: 201802

REACTIONS (3)
  - Fatigue [Not Recovered/Not Resolved]
  - Drug ineffective [Not Recovered/Not Resolved]
  - Product substitution issue [Not Recovered/Not Resolved]

NARRATIVE: CASE EVENT DATE: 201802
